FAERS Safety Report 25928139 (Version 1)
Quarter: 2025Q4

REPORT INFORMATION
  Report Type: Spontaneous
  Country: JP (occurrence: JP)
  Receive Date: 20251016
  Receipt Date: 20251016
  Transmission Date: 20260118
  Serious: Yes (Other)
  Sender: ACCORD
  Company Number: JP-MLMSERVICE-20251002-PI619169-00218-2

PATIENT
  Age: 43 Year
  Sex: Female

DRUGS (12)
  1. METHOTREXATE [Suspect]
     Active Substance: METHOTREXATE
     Indication: Acute lymphocytic leukaemia recurrent
     Route: 037
     Dates: end: 2022
  2. CYTARABINE [Concomitant]
     Active Substance: CYTARABINE
     Indication: Acute lymphocytic leukaemia recurrent
     Route: 037
     Dates: start: 202112
  3. LEUCOVORIN [Concomitant]
     Active Substance: LEUCOVORIN\LEUCOVORIN CALCIUM
     Indication: Chemotherapy toxicity attenuation
     Dosage: LEUCOVORIN 15 MG WAS ADMINISTERED INTRAVENOUSLY EVERY 3H FOR NINE DOSES
     Route: 042
  4. DEXAMETHASONE [Concomitant]
     Active Substance: DEXAMETHASONE
     Indication: Acute lymphocytic leukaemia recurrent
     Route: 037
     Dates: start: 202112
  5. LEUCOVORIN [Concomitant]
     Active Substance: LEUCOVORIN\LEUCOVORIN CALCIUM
     Indication: Chemotherapy toxicity attenuation
     Dosage: LEUCOVORIN ORALLY EVERY 6 H FOR FOUR DAYS
     Route: 048
     Dates: start: 2022
  6. LEUCOVORIN [Concomitant]
     Active Substance: LEUCOVORIN\LEUCOVORIN CALCIUM
     Indication: Chemotherapy toxicity attenuation
     Dosage: LEUCOVORIN 15 MG WAS ADMINISTERED INTRAVENOUSLY EVERY 3H
     Route: 042
  7. CYTARABINE [Concomitant]
     Active Substance: CYTARABINE
     Indication: Central nervous system leukaemia
     Route: 037
     Dates: start: 202112
  8. CYTARABINE [Concomitant]
     Active Substance: CYTARABINE
     Indication: Acute lymphocytic leukaemia recurrent
     Dosage: REDUCED
     Route: 037
     Dates: end: 2022
  9. CYTARABINE [Concomitant]
     Active Substance: CYTARABINE
     Indication: Central nervous system leukaemia
     Dosage: REDUCED
     Route: 037
     Dates: end: 2022
  10. METHOTREXATE [Suspect]
     Active Substance: METHOTREXATE
     Indication: Central nervous system leukaemia
     Route: 037
     Dates: end: 2022
  11. DEXAMETHASONE [Concomitant]
     Active Substance: DEXAMETHASONE
     Indication: Acute lymphocytic leukaemia recurrent
     Dosage: REDUCED
     Route: 037
     Dates: end: 2022
  12. DEXAMETHASONE [Concomitant]
     Active Substance: DEXAMETHASONE
     Indication: Central nervous system leukaemia
     Route: 037
     Dates: start: 202112

REACTIONS (1)
  - Myelopathy [Recovering/Resolving]

NARRATIVE: CASE EVENT DATE: 20220101
